FAERS Safety Report 7814574-1 (Version None)
Quarter: 2011Q4

REPORT INFORMATION
  Report Type: 
  Country: None (occurrence: None)
  Receive Date: 20111014
  Receipt Date: 20111006
  Transmission Date: 20120403
  Serious: Yes (Other)
  Sender: FDA-Public Use
  Company Number: JP-AMGEN-JPNCT2010009878

PATIENT
  Age: 66 Year
  Sex: Male
  Weight: 75 kg

DRUGS (11)
  1. PANITUMUMAB [Suspect]
     Indication: COLORECTAL CANCER
     Dosage: 6 MG/KG, Q2WK
     Route: 041
     Dates: start: 20101112
  2. FLUOROURACIL [Concomitant]
     Indication: COLORECTAL CANCER
     Route: 040
     Dates: start: 20101112, end: 20101203
  3. IRINOTECAN HCL [Concomitant]
     Indication: COLORECTAL CANCER
     Route: 041
     Dates: start: 20101217
  4. LEVOLEUCOVORIN CALCIUM [Concomitant]
     Indication: COLORECTAL CANCER
     Route: 041
     Dates: start: 20101112, end: 20101203
  5. OXALIPLATIN [Suspect]
     Indication: COLORECTAL CANCER
     Route: 041
     Dates: start: 20101112, end: 20101203
  6. FLUOROURACIL [Concomitant]
     Route: 041
     Dates: start: 20101217
  7. LEVOLEUCOVORIN CALCIUM [Concomitant]
     Route: 041
     Dates: start: 20101217
  8. CORTICOSTEROIDS [Concomitant]
     Indication: PROPHYLAXIS
     Route: 065
  9. FLUOROURACIL [Concomitant]
     Route: 041
     Dates: start: 20101112, end: 20101203
  10. FLUOROURACIL [Concomitant]
     Route: 040
     Dates: start: 20101217
  11. ANTIHISTAMINES [Concomitant]
     Indication: PROPHYLAXIS
     Route: 065

REACTIONS (2)
  - IMPLANT SITE NECROSIS [None]
  - DRUG HYPERSENSITIVITY [None]
